FAERS Safety Report 5832803-0 (Version None)
Quarter: 2008Q3

REPORT INFORMATION
  Report Type: 
  Country: None (occurrence: None)
  Receive Date: 20080804
  Receipt Date: 20080723
  Transmission Date: 20090109
  Serious: Yes (Other)
  Sender: FDA-Public Use
  Company Number: FR-ROCHE-577603

PATIENT
  Sex: Female
  Weight: 70 kg

DRUGS (2)
  1. CAPECITABINE [Suspect]
     Indication: COLORECTAL CANCER
     Dosage: CUMULATIVE DOSE : 34 800 MG
     Route: 048
     Dates: start: 20080513
  2. RADIOTHERAPY MIXTURE [Suspect]
     Indication: COLORECTAL CANCER
     Dosage: UNIT - GY, DRUG NAME REPORTED ' RADIOTHERAPY',CUMULATIVE DOSE : 21.6 GY.
     Route: 065
     Dates: start: 20080513

REACTIONS (1)
  - FEMALE GENITAL TRACT FISTULA [None]
